FAERS Safety Report 6529993-3 (Version None)
Quarter: 2010Q1

REPORT INFORMATION
  Report Type: 
  Country: None (occurrence: None)
  Receive Date: 20100107
  Receipt Date: 20091229
  Transmission Date: 20100710
  Serious: Yes (Other)
  Sender: FDA-Public Use
  Company Number: US-PFIZER INC-2009302197

PATIENT
  Sex: Male
  Weight: 86.182 kg

DRUGS (12)
  1. CELEBREX [Suspect]
     Indication: MULTIPLE SCLEROSIS
     Dosage: 200 MG, DAILY
     Dates: start: 20080601
  2. CELEBREX [Suspect]
     Indication: SPINAL COLUMN STENOSIS
  3. GABAPENTIN [Suspect]
     Indication: MULTIPLE SCLEROSIS
     Dosage: 1400 MG, DAILY
     Dates: start: 20090724
  4. TYSABRI [Suspect]
     Indication: MULTIPLE SCLEROSIS
     Dosage: 300 MG, MONTHLY
     Route: 042
     Dates: start: 20080801, end: 20091230
  5. TYSABRI [Suspect]
     Indication: SPINAL COLUMN STENOSIS
  6. BACLOFEN [Concomitant]
     Dosage: 5MG TID AND ONE TAB QID
     Route: 048
  7. HYDROCHLOROTHIAZIDE [Concomitant]
     Dosage: 25 MG, HALF TABLET DAILY
     Route: 048
  8. IBUPROFEN [Concomitant]
     Dosage: 1 TABLET 4-5X DAILY
     Route: 048
  9. MULTI-VITAMINS [Concomitant]
     Dosage: FREQUENCY: 4 DAYS WEEKLY
     Route: 048
  10. BIOFLAVONOIDS [Concomitant]
  11. DETROL LA [Concomitant]
     Dosage: 1-2 TABS DAILY
  12. VITAMIN D3 [Concomitant]
     Dosage: 400 UNITS DAILY
     Route: 048

REACTIONS (8)
  - ALANINE AMINOTRANSFERASE INCREASED [None]
  - ASPARTATE AMINOTRANSFERASE INCREASED [None]
  - BLOOD BILIRUBIN INCREASED [None]
  - DRUG INEFFECTIVE [None]
  - GAIT DISTURBANCE [None]
  - HYPERCHOLESTEROLAEMIA [None]
  - HYPERTENSION [None]
  - OEDEMA PERIPHERAL [None]
